FAERS Safety Report 5793659-8 (Version None)
Quarter: 2008Q2

REPORT INFORMATION
  Report Type: 
  Country: None (occurrence: None)
  Receive Date: 20080627
  Receipt Date: 20080626
  Transmission Date: 20081010
  Serious: Yes (Life-Threatening, Hospitalization)
  Sender: FDA-Public Use
  Company Number: US-JNJFOC-20080606278

PATIENT
  Age: 48 Year
  Sex: Male

DRUGS (2)
  1. IMODIUM [Suspect]
     Indication: DYSENTERY
  2. DICYCLOVERINE [Suspect]
     Indication: DYSENTERY

REACTIONS (2)
  - INTESTINAL PERFORATION [None]
  - MEGACOLON [None]
